FAERS Safety Report 8975791 (Version 2)
Quarter: 2013Q3

REPORT INFORMATION
  Report Type: Report from Study
  Country: US (occurrence: US)
  Receive Date: 20121219
  Receipt Date: 20130805
  Transmission Date: 20140515
  Serious: Yes (Other)
  Sender: FDA-Public Use
  Company Number: US-ELI_LILLY_AND_COMPANY-US201212002526

PATIENT
  Age: 62 Year
  Sex: Male
  Weight: 76.64 kg

DRUGS (55)
  1. OLANZAPINE LONG-ACTING IM [Suspect]
     Dosage: 300 MG, UNK
     Route: 030
     Dates: start: 20100304
  2. OLANZAPINE LONG-ACTING IM [Suspect]
     Dosage: 300 MG, UNK
     Route: 030
     Dates: start: 20100401
  3. OLANZAPINE LONG-ACTING IM [Suspect]
     Dosage: 300 MG, UNK
     Route: 030
     Dates: start: 20100415
  4. OLANZAPINE LONG-ACTING IM [Suspect]
     Dosage: 300 MG, UNK
     Route: 030
     Dates: start: 20100429
  5. OLANZAPINE LONG-ACTING IM [Suspect]
     Dosage: 300 MG, UNK
     Route: 030
     Dates: start: 20100513
  6. OLANZAPINE LONG-ACTING IM [Suspect]
     Dosage: 300 MG, UNK
     Route: 030
     Dates: start: 20100527
  7. OLANZAPINE LONG-ACTING IM [Suspect]
     Dosage: 300 MG, UNK
     Route: 030
     Dates: start: 20100610
  8. OLANZAPINE LONG-ACTING IM [Suspect]
     Dosage: 300 MG, UNK
     Route: 030
     Dates: start: 20100624
  9. OLANZAPINE LONG-ACTING IM [Suspect]
     Dosage: 300 MG, UNK
     Route: 030
     Dates: start: 20100708
  10. OLANZAPINE LONG-ACTING IM [Suspect]
     Dosage: 405 MG, UNK
     Route: 030
     Dates: start: 20100722
  11. OLANZAPINE LONG-ACTING IM [Suspect]
     Dosage: 405 MG, UNK
     Route: 030
     Dates: start: 20100805
  12. OLANZAPINE LONG-ACTING IM [Suspect]
     Dosage: 405 MG, UNK
     Route: 030
     Dates: start: 20100819
  13. OLANZAPINE LONG-ACTING IM [Suspect]
     Dosage: 405 MG, UNK
     Route: 030
     Dates: start: 20100902
  14. OLANZAPINE LONG-ACTING IM [Suspect]
     Dosage: 405 MG, UNK
     Route: 030
     Dates: start: 20100916
  15. OLANZAPINE LONG-ACTING IM [Suspect]
     Dosage: 405 MG, UNK
     Route: 030
     Dates: start: 20100930
  16. OLANZAPINE LONG-ACTING IM [Suspect]
     Dosage: 405 MG, UNK
     Route: 030
     Dates: start: 20101014
  17. OLANZAPINE LONG-ACTING IM [Suspect]
     Dosage: 405 MG, UNK
     Route: 030
     Dates: start: 20110511
  18. OLANZAPINE LONG-ACTING IM [Suspect]
     Dosage: 405 MG, UNK
     Route: 030
     Dates: start: 20110526
  19. OLANZAPINE LONG-ACTING IM [Suspect]
     Dosage: 405 MG, UNK
     Route: 030
     Dates: start: 20110609
  20. OLANZAPINE LONG-ACTING IM [Suspect]
     Dosage: 405 MG, UNK
     Route: 030
     Dates: start: 20110623
  21. OLANZAPINE LONG-ACTING IM [Suspect]
     Dosage: 405 MG, UNK
     Route: 030
     Dates: start: 20110707
  22. OLANZAPINE LONG-ACTING IM [Suspect]
     Dosage: 405 MG, UNK
     Route: 030
     Dates: start: 20110721
  23. OLANZAPINE LONG-ACTING IM [Suspect]
     Dosage: 405 MG, UNK
     Route: 030
     Dates: start: 20110804
  24. OLANZAPINE LONG-ACTING IM [Suspect]
     Dosage: 405 MG, UNK
     Route: 030
     Dates: start: 20110818
  25. OLANZAPINE LONG-ACTING IM [Suspect]
     Dosage: 405 MG, UNK
     Route: 030
     Dates: start: 20110901
  26. OLANZAPINE LONG-ACTING IM [Suspect]
     Dosage: 405 MG, UNK
     Route: 030
     Dates: start: 20110915
  27. OLANZAPINE LONG-ACTING IM [Suspect]
     Dosage: 405 MG, UNK
     Route: 030
     Dates: start: 20110929
  28. OLANZAPINE LONG-ACTING IM [Suspect]
     Dosage: 405 MG, UNK
     Route: 030
     Dates: start: 20111013
  29. OLANZAPINE LONG-ACTING IM [Suspect]
     Dosage: 405 MG, UNK
     Route: 030
     Dates: start: 20111027
  30. OLANZAPINE LONG-ACTING IM [Suspect]
     Dosage: 405 MG, UNK
     Route: 030
     Dates: start: 20111110
  31. OLANZAPINE LONG-ACTING IM [Suspect]
     Dosage: 405 MG, UNK
     Route: 030
     Dates: start: 20111222
  32. OLANZAPINE LONG-ACTING IM [Suspect]
     Dosage: 405 MG, UNK
     Route: 030
     Dates: start: 20120105
  33. OLANZAPINE LONG-ACTING IM [Suspect]
     Dosage: 405 MG, UNK
     Route: 030
     Dates: start: 20120119
  34. OLANZAPINE LONG-ACTING IM [Suspect]
     Dosage: 405 MG, UNK
     Route: 030
     Dates: start: 20120202
  35. OLANZAPINE LONG-ACTING IM [Suspect]
     Dosage: 405 MG, UNK
     Route: 030
     Dates: start: 20120216
  36. OLANZAPINE LONG-ACTING IM [Suspect]
     Dosage: 405 MG, UNK
     Route: 030
     Dates: start: 20120301
  37. OLANZAPINE LONG-ACTING IM [Suspect]
     Dosage: 405 MG, UNK
     Route: 030
     Dates: start: 20120315
  38. OLANZAPINE LONG-ACTING IM [Suspect]
     Dosage: 405 MG, UNK
     Route: 030
     Dates: start: 20120329
  39. OLANZAPINE LONG-ACTING IM [Suspect]
     Dosage: 405 MG, UNK
     Route: 030
     Dates: start: 20120412
  40. OLANZAPINE LONG-ACTING IM [Suspect]
     Dosage: 405 MG, UNK
     Route: 030
     Dates: start: 20120426
  41. OLANZAPINE LONG-ACTING IM [Suspect]
     Dosage: 405 MG, UNK
     Route: 030
     Dates: start: 20120510
  42. OLANZAPINE LONG-ACTING IM [Suspect]
     Dosage: 405 MG, UNK
     Route: 030
     Dates: start: 20120816
  43. OLANZAPINE LONG-ACTING IM [Suspect]
     Dosage: 405 MG, UNK
     Route: 030
     Dates: start: 20120830
  44. OLANZAPINE LONG-ACTING IM [Suspect]
     Dosage: 405 MG, UNK
     Route: 030
     Dates: start: 20120913
  45. OLANZAPINE LONG-ACTING IM [Suspect]
     Dosage: 405 MG, UNK
     Route: 030
     Dates: start: 20120927
  46. OLANZAPINE LONG-ACTING IM [Suspect]
     Dosage: 405 MG, UNK
     Route: 030
     Dates: start: 20121011
  47. OLANZAPINE LONG-ACTING IM [Suspect]
     Dosage: 405 MG, UNK
     Route: 030
     Dates: start: 20121025
  48. OLANZAPINE LONG-ACTING IM [Suspect]
     Dosage: 405 MG, UNK
     Route: 030
     Dates: start: 20121122
  49. OLANZAPINE LONG-ACTING IM [Suspect]
     Dosage: 405 MG, UNK
     Route: 030
     Dates: start: 20121206
  50. BABY ASPIRIN [Concomitant]
  51. DEPAKOTE [Concomitant]
     Indication: BEHAVIOURAL AND PSYCHIATRIC SYMPTOMS OF DEMENTIA
     Dosage: 1000 MG, BID
  52. HALDOL [Concomitant]
  53. LITHIUM [Concomitant]
     Dosage: 300 MG, BID
  54. PROTONIX [Concomitant]
     Dosage: 40 MG, UNK
  55. ZOCOR [Concomitant]
     Dosage: 10 MG, UNK

REACTIONS (7)
  - Sedation [Recovered/Resolved]
  - Sedation [Recovered/Resolved]
  - Snoring [Recovered/Resolved]
  - Tremor [Recovered/Resolved]
  - Somnolence [Recovered/Resolved]
  - Muscle rigidity [Recovered/Resolved]
  - Sedation [Recovered/Resolved]
